FAERS Safety Report 7162775-0 (Version None)
Quarter: 2010Q4

REPORT INFORMATION
  Report Type: 
  Country: None (occurrence: None)
  Receive Date: 20101215
  Receipt Date: 20101203
  Transmission Date: 20110411
  Serious: Yes (Other)
  Sender: FDA-Public Use
  Company Number: CA-ASTRAZENECA-2010SE58735

PATIENT
  Sex: Female

DRUGS (4)
  1. PROPOFOL [Suspect]
     Indication: ANAESTHESIA
     Route: 042
  2. PROPOFOL [Suspect]
     Dosage: 200 MCG/KG/MIN
     Route: 042
  3. EMLA [Concomitant]
     Indication: PREMEDICATION
  4. LIDOCAINE [Concomitant]
     Indication: ANAESTHESIA
     Dosage: 0.5 MG/KG

REACTIONS (1)
  - RESPIRATORY FAILURE [None]
